FAERS Safety Report 23148588 (Version 1)
Quarter: 2023Q4

REPORT INFORMATION
  Report Type: Report from Study
  Country: US (occurrence: US)
  Receive Date: 20231106
  Receipt Date: 20231106
  Transmission Date: 20240110
  Serious: Yes (Hospitalization)
  Sender: FDA-Public Use
  Company Number: US-TAKEDA-US201708800

PATIENT
  Age: 75 Year
  Sex: Female
  Weight: 58 kg

DRUGS (12)
  1. VELAGLUCERASE ALFA [Suspect]
     Active Substance: VELAGLUCERASE ALFA
     Indication: Gaucher^s disease type I
     Dosage: 60 INTERNATIONAL UNIT/KILOGRAM, Q2WEEKS
     Route: 041
     Dates: start: 20100710
  2. VITAMIN C [Concomitant]
     Active Substance: ASCORBIC ACID
     Indication: Supplementation therapy
     Dosage: 500 MG, 2X/DAY:BID
     Route: 048
  3. VITAMIN D [Concomitant]
     Active Substance: VITAMIN D NOS
     Indication: Supplementation therapy
     Dosage: 1000 IU, 1X/DAY:QD
     Route: 048
  4. REGULOID [Concomitant]
     Active Substance: PSYLLIUM HUSK
     Indication: Constipation
     Dosage: 8 OUNCES POWDER, 1X/DAY:QD
     Route: 048
  5. VITAMIN A [Concomitant]
     Active Substance: VITAMIN A
     Indication: Supplementation therapy
     Dosage: 8000 IU, 1X/DAY:QD
     Route: 048
  6. VANCOMYCIN [Concomitant]
     Active Substance: VANCOMYCIN
     Indication: Cellulitis
     Dosage: 1000 MILLIGRAM, BID
     Route: 042
     Dates: start: 20160611
  7. UNASYN [Concomitant]
     Active Substance: AMPICILLIN SODIUM\SULBACTAM SODIUM
     Indication: Cellulitis
     Dosage: 1.5 GRAM
     Route: 042
     Dates: start: 20160611, end: 20160621
  8. UNASYN [Concomitant]
     Active Substance: AMPICILLIN SODIUM\SULBACTAM SODIUM
     Indication: Skin ulcer
  9. UNASYN [Concomitant]
     Active Substance: AMPICILLIN SODIUM\SULBACTAM SODIUM
     Indication: Venous hypertension
  10. OSCAL [Concomitant]
     Active Substance: CALCIUM CARBONATE
     Indication: Cellulitis
     Dosage: 500 MILLIGRAM, BID
     Route: 048
     Dates: start: 20160612
  11. OSCAL [Concomitant]
     Active Substance: CALCIUM CARBONATE
     Indication: Skin ulcer
  12. OSCAL [Concomitant]
     Active Substance: CALCIUM CARBONATE
     Indication: Venous hypertension

REACTIONS (1)
  - Skin ulcer [Not Recovered/Not Resolved]

NARRATIVE: CASE EVENT DATE: 20170407
